FAERS Safety Report 12966533 (Version 3)
Quarter: 2017Q2

REPORT INFORMATION
  Report Type: Spontaneous
  Country: US (occurrence: US)
  Receive Date: 20161122
  Receipt Date: 20170523
  Transmission Date: 20170830
  Serious: Yes (Hospitalization, Other)
  Sender: FDA-Public Use
  Company Number: US-TEVA-714136USA

PATIENT
  Age: 76 Year
  Sex: Female
  Weight: 81.72 kg

DRUGS (4)
  1. CARBIDOPA W/LEVODOPA [Concomitant]
     Active Substance: CARBIDOPA\LEVODOPA
  2. GABAPENTIN. [Concomitant]
     Active Substance: GABAPENTIN
  3. AZILECT [Suspect]
     Active Substance: RASAGILINE MESYLATE
     Indication: PARKINSON^S DISEASE
     Route: 065
     Dates: start: 2011
  4. MYOTEC [Concomitant]

REACTIONS (2)
  - Colitis ischaemic [Unknown]
  - Herpes zoster [Unknown]

NARRATIVE: CASE EVENT DATE: 201502
